FAERS Safety Report 4854194-4 (Version None)
Quarter: 2005Q4

REPORT INFORMATION
  Report Type: 
  Country: None (occurrence: None)
  Receive Date: 20051213
  Receipt Date: 20051130
  Transmission Date: 20060501
  Serious: Yes (Other)
  Sender: FDA-Public Use
  Company Number: 2005163357

PATIENT
  Age: 43 Year
  Sex: Male
  Weight: 90.7194 kg

DRUGS (5)
  1. SOMAVERT [Suspect]
     Indication: ACROMEGALY
     Dosage: (DAILY), INTRAMUSCULAR
     Route: 030
     Dates: start: 20030101
  2. TESTOSTERONE [Concomitant]
  3. SYNTHROID [Concomitant]
  4. CORTEF [Concomitant]
  5. SANDOSTATIN [Concomitant]

REACTIONS (4)
  - HAEMORRHAGE URINARY TRACT [None]
  - NEPHROLITHIASIS [None]
  - PROSTATIC DISORDER [None]
  - URINARY TRACT INFECTION [None]
